FAERS Safety Report 22030028 (Version 1)
Quarter: 2023Q1

REPORT INFORMATION
  Report Type: Spontaneous
  Country: US (occurrence: US)
  Receive Date: 20230223
  Receipt Date: 20230223
  Transmission Date: 20230418
  Serious: Yes (Other)
  Sender: FDA-Public Use
  Company Number: US-LANTHEUS-LMI-2022-01470

PATIENT
  Age: 79 Year
  Sex: Female
  Weight: 74 kg

DRUGS (1)
  1. DEFINITY [Suspect]
     Active Substance: PERFLUTREN
     Indication: Echocardiogram
     Dosage: 4 ML (1.3 ML DEFINITY PREPARED IN 8.7 ML NORMAL SALINE)
     Route: 042
     Dates: start: 20221202, end: 20221202

REACTIONS (2)
  - Seizure [Recovered/Resolved]
  - Heart rate increased [Recovered/Resolved]

NARRATIVE: CASE EVENT DATE: 20221202
